FAERS Safety Report 6382266-4 (Version None)
Quarter: 2009Q3

REPORT INFORMATION
  Report Type: 
  Country: None (occurrence: None)
  Receive Date: 20090928
  Receipt Date: 20090928
  Transmission Date: 20100115
  Serious: Yes (Other)
  Sender: FDA-Public Use
  Company Number: None

PATIENT
  Sex: Female

DRUGS (2)
  1. LAMOTRIGINE [Suspect]
     Indication: EPILEPSY
     Dosage: 1 TABLET TWICE DAILY P.O.
     Route: 048
     Dates: start: 20090520
  2. TOPIRAMATE [Suspect]
     Dosage: 1 TABLET AM 2 TABLETS PM P.O.
     Route: 048
     Dates: start: 20090512

REACTIONS (3)
  - CONVULSION [None]
  - MYOCLONUS [None]
  - PRODUCT SUBSTITUTION ISSUE [None]
